FAERS Safety Report 8219052-6 (Version None)
Quarter: 2012Q1

REPORT INFORMATION
  Report Type: 
  Country: None (occurrence: None)
  Receive Date: 20120307
  Receipt Date: 20090617
  Transmission Date: 20120608
  Serious: Yes (Death)
  Sender: FDA-Public Use
  Company Number: PHEH2009US06419

PATIENT
  Sex: Male

DRUGS (3)
  1. DEXAMETHASONE [Concomitant]
  2. AFINITOR [Suspect]
     Indication: RENAL CELL CARCINOMA
  3. EFEXOR XR (VENLAFAXINE) [Concomitant]

REACTIONS (1)
  - NEOPLASM PROGRESSION [None]
